FAERS Safety Report 25390061 (Version 2)
Quarter: 2025Q3

REPORT INFORMATION
  Report Type: Report from Study
  Country: US (occurrence: US)
  Receive Date: 20250603
  Receipt Date: 20250802
  Transmission Date: 20251021
  Serious: Yes (Other)
  Sender: ALEXION PHARMACEUTICALS
  Company Number: US-ASTRAZENECA-202505USA026333US

PATIENT
  Age: 62 Year
  Sex: Female

DRUGS (1)
  1. STRENSIQ [Suspect]
     Active Substance: ASFOTASE ALFA
     Indication: Phosphorus metabolism disorder
     Dosage: 2 MILLIGRAM/KILOGRAM, TIW, AS DIRECTED
     Route: 065

REACTIONS (4)
  - Cataract nuclear [Unknown]
  - Vitreous degeneration [Unknown]
  - Meibomian gland dysfunction [Unknown]
  - Presbyopia [Unknown]

NARRATIVE: CASE EVENT DATE: 20250521
